FAERS Safety Report 23116898 (Version 3)
Quarter: 2024Q1

REPORT INFORMATION
  Report Type: Spontaneous
  Country: DE (occurrence: DE)
  Receive Date: 20231027
  Receipt Date: 20240229
  Transmission Date: 20240409
  Serious: Yes (Hospitalization, Other)
  Sender: FDA-Public Use
  Company Number: DE-MSNLABS-2023MSNLIT00020

PATIENT
  Age: 46 Year
  Sex: Male

DRUGS (1)
  1. FINGOLIMOD [Suspect]
     Active Substance: FINGOLIMOD
     Indication: Relapsing-remitting multiple sclerosis
     Dosage: UNK
     Route: 065

REACTIONS (11)
  - Lymphopenia [Recovering/Resolving]
  - Monkeypox [Recovering/Resolving]
  - Urinary retention [Recovering/Resolving]
  - Proctitis [Recovering/Resolving]
  - Gastrointestinal haemorrhage [Recovering/Resolving]
  - Hyperbilirubinaemia [Recovering/Resolving]
  - Leukopenia [Recovered/Resolved]
  - Skin lesion [Unknown]
  - Haematuria [Unknown]
  - Cellulitis [Unknown]
  - Lymphadenopathy [Unknown]
